FAERS Safety Report 24598798 (Version 5)
Quarter: 2025Q3

REPORT INFORMATION
  Report Type: Spontaneous
  Country: US (occurrence: US)
  Receive Date: 20241110
  Receipt Date: 20250701
  Transmission Date: 20251020
  Serious: Yes (Other)
  Sender: SANOFI AVENTIS
  Company Number: US-SA-2024SA309165

PATIENT
  Age: 47 Year
  Sex: Female

DRUGS (2)
  1. DUPIXENT [Suspect]
     Active Substance: DUPILUMAB
     Indication: Asthma
     Route: 058
     Dates: start: 20240829, end: 20240829
  2. DUPIXENT [Suspect]
     Active Substance: DUPILUMAB
     Indication: Eczema
     Dosage: 300 MG, QOW
     Route: 058
     Dates: start: 202409

REACTIONS (10)
  - Pneumonia [Unknown]
  - Cough [Unknown]
  - Pyrexia [Unknown]
  - Pain [Unknown]
  - Cough [Recovered/Resolved]
  - Injection site mass [Recovered/Resolved]
  - Injection site swelling [Recovered/Resolved]
  - Asthma [Recovering/Resolving]
  - Dyspnoea [Recovering/Resolving]
  - Sleep disorder due to a general medical condition [Recovering/Resolving]

NARRATIVE: CASE EVENT DATE: 20240101
